FAERS Safety Report 4379772-0 (Version None)
Quarter: 2004Q2

REPORT INFORMATION
  Report Type: 
  Country: None (occurrence: None)
  Receive Date: 20040617
  Receipt Date: 20040610
  Transmission Date: 20050107
  Serious: Yes (Hospitalization)
  Sender: FDA-Public Use
  Company Number: GB-JNJFOC-20040602452

PATIENT
  Age: 29 Year
  Sex: Female

DRUGS (2)
  1. MICRONOR [Suspect]
     Route: 049
  2. TRANEXAMIC ACID [Concomitant]
     Indication: DYSMENORRHOEA
     Route: 049

REACTIONS (4)
  - HEADACHE [None]
  - MUSCULOSKELETAL STIFFNESS [None]
  - PHOTOPHOBIA [None]
  - RASH PRURITIC [None]
